FAERS Safety Report 11338390 (Version 1)
Quarter: 2015Q3

REPORT INFORMATION
  Report Type: Spontaneous
  Country: US (occurrence: US)
  Receive Date: 20150803
  Receipt Date: 20150803
  Transmission Date: 20151125
  Serious: No
  Sender: FDA-Public Use
  Company Number: US-ELI_LILLY_AND_COMPANY-US200708001256

PATIENT
  Sex: Male

DRUGS (6)
  1. CYCLOBENZAPRINE [Concomitant]
     Active Substance: CYCLOBENZAPRINE
  2. TRAMADOL. [Concomitant]
     Active Substance: TRAMADOL
  3. IBUPROFEN. [Concomitant]
     Active Substance: IBUPROFEN
  4. SKELAXIN [Concomitant]
     Active Substance: METAXALONE
  5. STRATTERA [Suspect]
     Active Substance: ATOMOXETINE HYDROCHLORIDE
     Dosage: 40 MG, UNK
     Route: 048
  6. GABAPENTIN. [Concomitant]
     Active Substance: GABAPENTIN

REACTIONS (1)
  - Urine amphetamine positive [Unknown]
